FAERS Safety Report 6493033-5 (Version None)
Quarter: 2009Q4

REPORT INFORMATION
  Report Type: 
  Country: None (occurrence: None)
  Receive Date: 20091211
  Receipt Date: 20091211
  Transmission Date: 20100525
  Serious: Yes (Other)
  Sender: FDA-Public Use
  Company Number: None

PATIENT
  Sex: Female
  Weight: 100.6985 kg

DRUGS (2)
  1. LEVOTHYROXINE SODIUM [Suspect]
     Indication: HYPOTHYROIDISM
     Dosage: ONE PO QD PO
     Route: 048
     Dates: start: 20080421, end: 20090803
  2. LEVOTHYROXINE SODIUM [Suspect]
     Dosage: ONE PO QD PO
     Route: 048

REACTIONS (1)
  - BLOOD THYROID STIMULATING HORMONE ABNORMAL [None]
